FAERS Safety Report 7196318-2 (Version None)
Quarter: 2010Q4

REPORT INFORMATION
  Report Type: 
  Country: None (occurrence: None)
  Receive Date: 20101223
  Receipt Date: 20101215
  Transmission Date: 20110411
  Serious: Yes (Hospitalization)
  Sender: FDA-Public Use
  Company Number: US-GILEAD-2010-0034459

PATIENT
  Sex: Female

DRUGS (2)
  1. LETAIRIS [Suspect]
     Indication: PULMONARY ARTERIAL HYPERTENSION
     Route: 048
     Dates: start: 20101201
  2. LETAIRIS [Suspect]
     Route: 048
     Dates: start: 20100803, end: 20101101

REACTIONS (3)
  - HEART RATE DECREASED [None]
  - HEART RATE INCREASED [None]
  - IMPLANTABLE DEFIBRILLATOR INSERTION [None]
